FAERS Safety Report 23383464 (Version 1)
Quarter: 2024Q1

REPORT INFORMATION
  Report Type: Spontaneous
  Country: US (occurrence: None)
  Receive Date: 20240109
  Receipt Date: 20240109
  Transmission Date: 20240409
  Serious: Yes (Hospitalization)
  Sender: FDA-Public Use
  Company Number: None

PATIENT
  Age: 57 Year
  Sex: Female
  Weight: 63.1 kg

DRUGS (2)
  1. PERTUZUMAB [Suspect]
     Active Substance: PERTUZUMAB
     Dates: end: 20231211
  2. HERCEPTIN [Suspect]
     Active Substance: TRASTUZUMAB
     Dates: end: 20231211

REACTIONS (5)
  - Breast swelling [None]
  - Erythema [None]
  - Biopsy breast [None]
  - Breast discharge infected [None]
  - Device related infection [None]

NARRATIVE: CASE EVENT DATE: 20240104
